FAERS Safety Report 15269722 (Version 1)
Quarter: 2018Q3

REPORT INFORMATION
  Report Type: Spontaneous
  Country: CA (occurrence: CA)
  Receive Date: 20180813
  Receipt Date: 20180813
  Transmission Date: 20181010
  Serious: Yes (Hospitalization, Other)
  Sender: FDA-Public Use
  Company Number: CA-CELLTRION INC.-2018CA019645

PATIENT

DRUGS (21)
  1. INFLECTRA [Suspect]
     Active Substance: INFLIXIMAB-DYYB
     Indication: PSORIATIC ARTHROPATHY
     Dosage: 300 MG, CYCLIC (EVERY 0, 2, 6 WEEKS, THEN EVERY 8 WEEKS)
     Route: 042
     Dates: start: 20180104
  2. INFLECTRA [Suspect]
     Active Substance: INFLIXIMAB-DYYB
     Dosage: 300 MG, CYCLIC (EVERY 0, 2, 6 WEEKS, THEN EVERY 8 WEEKS)
     Route: 042
     Dates: start: 20180410
  3. FOLIC ACID. [Concomitant]
     Active Substance: FOLIC ACID
     Dosage: UNK
  4. ONGLYZA [Concomitant]
     Active Substance: SAXAGLIPTIN HYDROCHLORIDE
     Dosage: UNK
  5. VITAMIN B12 [Concomitant]
     Active Substance: CYANOCOBALAMIN
     Dosage: UNK
  6. PRAMIPEXOLE. [Concomitant]
     Active Substance: PRAMIPEXOLE
     Dosage: UNK
  7. OMEPRAZOLE. [Concomitant]
     Active Substance: OMEPRAZOLE
     Dosage: UNK
  8. INFLECTRA [Suspect]
     Active Substance: INFLIXIMAB-DYYB
     Dosage: 300 MG, CYCLIC (EVERY 0, 2, 6 WEEKS, THEN EVERY 8 WEEKS)
     Route: 042
     Dates: start: 20180605
  9. VITAMIN D                          /00107901/ [Concomitant]
     Active Substance: ERGOCALCIFEROL
     Dosage: UNK
  10. SOLIFENACIN [Concomitant]
     Active Substance: SOLIFENACIN
     Dosage: UNK
  11. METHOTREXATE. [Concomitant]
     Active Substance: METHOTREXATE
     Dosage: UNK
     Dates: start: 2014
  12. METFORMIN [Concomitant]
     Active Substance: METFORMIN HYDROCHLORIDE
     Dosage: UNK
  13. APO?RAMIPRIL [Concomitant]
     Active Substance: RAMIPRIL
     Dosage: UNK
  14. ASA [Concomitant]
     Active Substance: ASPIRIN
     Dosage: UNK
  15. VENLAFAXINE [Concomitant]
     Active Substance: VENLAFAXINE HYDROCHLORIDE
     Dosage: UNK
  16. MYLAN GLICLAZIDE [Concomitant]
     Dosage: UNK
  17. PMS?MELOXICAM [Concomitant]
     Active Substance: MELOXICAM
     Dosage: UNK
  18. PREGABALIN TEVA [Concomitant]
     Dosage: UNK
  19. HYDROCHLOROTH [Concomitant]
     Active Substance: HYDROCHLOROTHIAZIDE
     Dosage: UNK
  20. MELOXICAM. [Concomitant]
     Active Substance: MELOXICAM
     Dosage: UNK
  21. SYNTHROID [Concomitant]
     Active Substance: LEVOTHYROXINE SODIUM
     Dosage: UNK

REACTIONS (7)
  - Back pain [Unknown]
  - Fibromyalgia [Unknown]
  - Pain [Unknown]
  - Urinary tract infection [Unknown]
  - Loss of personal independence in daily activities [Unknown]
  - Drug ineffective [Unknown]
  - Nephrolithiasis [Unknown]

NARRATIVE: CASE EVENT DATE: 20180603
